FAERS Safety Report 5281122-2 (Version None)
Quarter: 2007Q1

REPORT INFORMATION
  Report Type: 
  Country: None (occurrence: None)
  Receive Date: 20070323
  Receipt Date: 20070313
  Transmission Date: 20070707
  Serious: Yes (Other)
  Sender: FDA-Public Use
  Company Number: GXKR2007GB02493

PATIENT
  Age: 28 Year
  Sex: Female

DRUGS (1)
  1. CITALOPRAM HYDROBROMIDE [Suspect]
     Indication: DEPRESSION
     Dosage: 20 MG, QD, ORAL
     Route: 048
     Dates: start: 20070216, end: 20070218

REACTIONS (3)
  - DYSKINESIA [None]
  - MUSCLE TWITCHING [None]
  - OBSESSIVE-COMPULSIVE DISORDER [None]
